FAERS Safety Report 25833055 (Version 1)
Quarter: 2025Q3

REPORT INFORMATION
  Report Type: Spontaneous
  Country: CA (occurrence: CA)
  Receive Date: 20250922
  Receipt Date: 20250922
  Transmission Date: 20251021
  Serious: Yes (Other)
  Sender: PFIZER
  Company Number: CA-PFIZER INC-202500185622

PATIENT
  Age: 21 Year
  Sex: Male

DRUGS (1)
  1. RITUXIMAB [Suspect]
     Active Substance: RITUXIMAB
     Indication: Immune thrombocytopenia
     Route: 041

REACTIONS (5)
  - Abdominal pain upper [Unknown]
  - Arthralgia [Unknown]
  - Pyrexia [Unknown]
  - Tachycardia [Unknown]
  - Off label use [Unknown]
